FAERS Safety Report 7374953-6 (Version None)
Quarter: 2011Q1

REPORT INFORMATION
  Report Type: 
  Country: None (occurrence: None)
  Receive Date: 20110325
  Receipt Date: 20110311
  Transmission Date: 20110831
  Serious: Yes (Other)
  Sender: FDA-Public Use
  Company Number: PHHY2011JP18716

PATIENT

DRUGS (6)
  1. RASILEZ [Suspect]
     Indication: HYPERTENSION
     Dosage: UNK
     Route: 048
  2. SIMVASTATIN [Suspect]
     Dosage: UNK
     Route: 048
  3. NOVORAPID [Concomitant]
     Route: 058
  4. MICARDIS [Suspect]
     Dosage: UNK
     Route: 048
  5. CINAL [Concomitant]
     Route: 048
  6. LANTUS [Concomitant]
     Route: 058

REACTIONS (3)
  - PLATELET COUNT DECREASED [None]
  - BONE MARROW FAILURE [None]
  - BLOOD DISORDER [None]
